FAERS Safety Report 10611055 (Version 1)
Quarter: 2014Q4

REPORT INFORMATION
  Report Type: Spontaneous
  Country: TR (occurrence: None)
  Receive Date: 20141124
  Receipt Date: 20141124
  Transmission Date: 20150529
  Serious: Yes (Life-Threatening)
  Sender: FDA-Public Use
  Company Number: FK201405419

PATIENT
  Age: 27 Year
  Sex: Male

DRUGS (1)
  1. PROPOFOL FRESENIUS (NOT SPECIFIED) (PROPOFOL) (PROPOFOL) [Suspect]
     Active Substance: PROPOFOL
     Indication: ANAESTHESIA
     Dosage: 1 IN 1 TOTAL
     Dates: start: 20141031, end: 20141031

REACTIONS (2)
  - Shock [None]
  - Bradycardia [None]

NARRATIVE: CASE EVENT DATE: 20141031
